FAERS Safety Report 4474550-6 (Version None)
Quarter: 2004Q3

REPORT INFORMATION
  Report Type: 
  Country: None (occurrence: None)
  Receive Date: 20040923
  Receipt Date: 20040706
  Transmission Date: 20050211
  Serious: No
  Sender: FDA-Public Use
  Company Number: USA040771908

PATIENT
  Age: 63 Year
  Sex: Female
  Weight: 55 kg

DRUGS (3)
  1. FORTEO [Suspect]
     Indication: OSTEOPOROSIS
     Dates: start: 20040622, end: 20040703
  2. TRICOR [Concomitant]
  3. ZETIA [Concomitant]

REACTIONS (3)
  - ARTHRALGIA [None]
  - MUSCLE CRAMP [None]
  - PAIN IN EXTREMITY [None]
